FAERS Safety Report 8731519 (Version 2)
Quarter: 2012Q4

REPORT INFORMATION
  Report Type: 
  Country: CA (occurrence: CA)
  Receive Date: 20120820
  Receipt Date: 20120928
  Transmission Date: 20130627
  Serious: Yes (Other)
  Sender: FDA-Public Use
  Company Number: PHHY2012CA071294

PATIENT
  Sex: Female

DRUGS (3)
  1. CLOZARIL [Suspect]
     Route: 048
     Dates: start: 20110930, end: 20120118
  2. CLOZARIL [Suspect]
     Route: 048
     Dates: start: 20120426, end: 20120510
  3. CLOZARIL [Suspect]
     Route: 048
     Dates: start: 20120808, end: 20120813

REACTIONS (2)
  - Pyelonephritis [Unknown]
  - Escherichia sepsis [Recovered/Resolved]
